FAERS Safety Report 17618623 (Version 1)
Quarter: 2020Q2

REPORT INFORMATION
  Report Type: Spontaneous
  Country: US (occurrence: US)
  Receive Date: 20200402
  Receipt Date: 20200402
  Transmission Date: 20200713
  Serious: Yes (Hospitalization, Other)
  Sender: FDA-Public Use
  Company Number: US-MYLANLABS-2020M1034204

PATIENT
  Age: 54 Year
  Sex: Female

DRUGS (3)
  1. SUMATRIPTAN. [Suspect]
     Active Substance: SUMATRIPTAN
     Indication: MIGRAINE
     Route: 065
  2. IBUPROFEN. [Suspect]
     Active Substance: IBUPROFEN
     Indication: MIGRAINE
     Dosage: ALMOST DAILY FOR AROUND A YEAR WITH DAILY DOSES...2.4 GRAMS A DAY
     Route: 065
  3. POTASSIUM CHLORIDE. [Suspect]
     Active Substance: POTASSIUM CHLORIDE
     Indication: HYPOKALAEMIA
     Dosage: 60 MILLIEQUIVALENT
     Route: 048

REACTIONS (6)
  - Fall [Recovered/Resolved]
  - Muscular weakness [Recovered/Resolved]
  - Hypokalaemia [Recovered/Resolved]
  - Renal tubular acidosis [Recovered/Resolved]
  - Drug ineffective [Unknown]
  - Overdose [Recovered/Resolved]
